FAERS Safety Report 6561649 (Version 7)
Quarter: 2017Q3

REPORT INFORMATION
  Report Type: Spontaneous
  Country: JP (occurrence: JP)
  Receive Date: 20080226
  Receipt Date: 20170828
  Transmission Date: 20171128
  Serious: Yes (Life-Threatening)
  Sender: FDA-Public Use
  Company Number: JP-BAYER-200810285BYL

PATIENT
  Age: 48 Year
  Sex: Female
  Weight: 50 kg

DRUGS (12)
  1. BAKTAR [Suspect]
     Active Substance: SULFAMETHOXAZOLE\TRIMETHOPRIM
     Indication: PNEUMONIA MYCOPLASMAL
     Route: 048
     Dates: start: 20061030, end: 20061110
  2. ROCEPHIN [Suspect]
     Active Substance: CEFTRIAXONE SODIUM
     Indication: PNEUMONIA MYCOPLASMAL
     Route: 041
     Dates: start: 20061020, end: 20061030
  3. BLOPRESS [Suspect]
     Active Substance: CANDESARTAN CILEXETIL
     Indication: HYPERTENSION
  4. MINOCYCLINE HYDROCHLORIDE. [Concomitant]
     Active Substance: MINOCYCLINE HYDROCHLORIDE
  5. METHYLPREDNISOLONE. [Concomitant]
     Active Substance: METHYLPREDNISOLONE
     Indication: PNEUMONIA
     Dosage: DAILY DOSE 1 G
     Route: 065
  6. CIPROXAN-I.V.300 [Suspect]
     Active Substance: CIPROFLOXACIN
     Indication: PNEUMONIA MYCOPLASMAL
     Route: 041
     Dates: start: 20061020, end: 20061030
  7. BAYASPIRIN 100 MG [Suspect]
     Active Substance: ASPIRIN
     Route: 048
     Dates: start: 200610, end: 200611
  8. BLOPRESS [Suspect]
     Active Substance: CANDESARTAN CILEXETIL
     Indication: HYPERTENSION
     Route: 048
     Dates: start: 20061028, end: 20061110
  9. AZITHROMYCIN ANHYDROUS. [Concomitant]
     Active Substance: AZITHROMYCIN ANHYDROUS
     Indication: PNEUMONIA MYCOPLASMAL
     Dosage: UNK
     Route: 065
  10. AZITHROMYCIN ANHYDROUS. [Concomitant]
     Active Substance: AZITHROMYCIN ANHYDROUS
  11. UNASYN S [Suspect]
     Active Substance: AMPICILLIN SODIUM\SULBACTAM SODIUM
     Indication: PNEUMONIA MYCOPLASMAL
     Dosage: 6 G (DAILY DOSE), QID, IV DRIP
     Route: 041
     Dates: start: 20061017, end: 20061020
  12. METHYLPREDNISOLONE. [Concomitant]
     Active Substance: METHYLPREDNISOLONE
     Indication: PNEUMONIA
     Dosage: 80 MG, QD

REACTIONS (7)
  - Toxic epidermal necrolysis [Recovered/Resolved]
  - Skin plaque [Recovered/Resolved]
  - Dermatitis bullous [Recovered/Resolved]
  - Rash macular [Recovered/Resolved]
  - Erythema [Recovered/Resolved]
  - Skin lesion [Recovered/Resolved]
  - Pyrexia [Recovered/Resolved]

NARRATIVE: CASE EVENT DATE: 20061031
